FAERS Safety Report 17507323 (Version 1)
Quarter: 2020Q1

REPORT INFORMATION
  Report Type: Report from Study
  Country: GB (occurrence: GB)
  Receive Date: 20200305
  Receipt Date: 20200305
  Transmission Date: 20200409
  Serious: Yes (Other)
  Sender: FDA-Public Use
  Company Number: GB-SAMSUNG BIOEPIS-SB-2020-05582

PATIENT
  Sex: Female

DRUGS (1)
  1. BENEPALI [Suspect]
     Active Substance: ETANERCEPT
     Indication: RHEUMATOID ARTHRITIS
     Route: 058
     Dates: start: 20160513

REACTIONS (5)
  - Lower respiratory tract infection [Recovering/Resolving]
  - Tooth infection [Recovering/Resolving]
  - Anal incontinence [Unknown]
  - Viral infection [Unknown]
  - Immunodeficiency [Not Recovered/Not Resolved]
